FAERS Safety Report 20379509 (Version 1)
Quarter: 2022Q1

REPORT INFORMATION
  Report Type: Spontaneous
  Country: BR (occurrence: BR)
  Receive Date: 20220126
  Receipt Date: 20220126
  Transmission Date: 20220423
  Serious: Yes (Hospitalization)
  Sender: FDA-Public Use
  Company Number: BR-AMGEN-BRASP2022008647

PATIENT
  Sex: Male

DRUGS (1)
  1. BLINCYTO [Suspect]
     Active Substance: BLINATUMOMAB
     Indication: Bone marrow transplant
     Dosage: UNK
     Route: 065
     Dates: start: 2019, end: 20220104

REACTIONS (4)
  - Arthropathy [Unknown]
  - Eye disorder [Unknown]
  - General physical health deterioration [Unknown]
  - Pyrexia [Unknown]
